FAERS Safety Report 7545253-6 (Version None)
Quarter: 2011Q2

REPORT INFORMATION
  Report Type: 
  Country: None (occurrence: None)
  Receive Date: 20110607
  Receipt Date: 20110523
  Transmission Date: 20111010
  Serious: Yes (Life-Threatening, Hospitalization, Other)
  Sender: FDA-Public Use
  Company Number: AUR-APL-2011-01870

PATIENT
  Age: 62 Year
  Sex: Female
  Weight: 134.7183 kg

DRUGS (6)
  1. SUXMETHONIUM CHLORIDE [Concomitant]
     Dosage: 25 MG
  2. NORTRIPTYLINE HCL [Suspect]
     Dosage: 25MG
  3. ATORVASTATIN [Suspect]
     Dosage: 20MG
  4. ONDANSETRON [Suspect]
     Indication: PROCEDURAL VOMITING
  5. ONDANSETRON [Suspect]
     Indication: PROCEDURAL NAUSEA
  6. ESCITALOPRAM [Suspect]
     Dosage: 10 MG

REACTIONS (9)
  - VENTRICULAR FIBRILLATION [None]
  - SINUS BRADYCARDIA [None]
  - LONG QT SYNDROME [None]
  - FIBROSIS [None]
  - OPERATIVE HAEMORRHAGE [None]
  - EJECTION FRACTION DECREASED [None]
  - VENTRICULAR TACHYCARDIA [None]
  - INCISION SITE HAEMORRHAGE [None]
  - CARDIAC ARREST [None]
